FAERS Safety Report 21202695 (Version 2)
Quarter: 2022Q3

REPORT INFORMATION
  Report Type: Report from Study
  Country: DE (occurrence: DE)
  Receive Date: 20220811
  Receipt Date: 20220822
  Transmission Date: 20221027
  Serious: No
  Sender: FDA-Public Use
  Company Number: DE-BAXTER-2022BAX017058

PATIENT
  Age: 43 Year
  Sex: Male
  Weight: 74 kg

DRUGS (4)
  1. OLIMEL E [Suspect]
     Active Substance: AMINO ACIDS\DEXTROSE\ELECTROLYTES NOS\SOYBEAN OIL
     Indication: Parenteral nutrition
     Dosage: 2000 ML, ONCE DAILY, INFUSED AT THE RATE OF 168.3 ML/H VIA CENTRAL VENOUS ROUTE
     Route: 042
     Dates: start: 20220531
  2. CERNEVIT [Suspect]
     Active Substance: VITAMINS
     Indication: Parenteral nutrition
     Dosage: 750 MG, ONCE DAILY, INFUSED AT THE RATE OF 168.3 ML/H VIA CENTRAL VENOUS ROUTE
     Route: 042
     Dates: start: 20220531
  3. ELECTROLYTES NOS\MINERALS [Suspect]
     Active Substance: ELECTROLYTES NOS\MINERALS
     Indication: Parenteral nutrition
     Dosage: 10 ML, ONCE DAILY, INFUSED AT THE RATE OF 168.3 ML/H VIA CENTRAL VENOUS ROUTE
     Route: 042
     Dates: start: 20220531
  4. UNSPECIFIED INGREDIENT [Suspect]
     Active Substance: UNSPECIFIED INGREDIENT
     Route: 065

REACTIONS (2)
  - Pyrexia [Recovered/Resolved]
  - Symptom recurrence [Unknown]

NARRATIVE: CASE EVENT DATE: 20220808
